FAERS Safety Report 19854692 (Version 1)
Quarter: 2021Q3

REPORT INFORMATION
  Report Type: Report from Study
  Country: KR (occurrence: KR)
  Receive Date: 20210920
  Receipt Date: 20210920
  Transmission Date: 20211014
  Serious: Yes (Hospitalization)
  Sender: FDA-Public Use
  Company Number: NVSC2021KR211029

PATIENT
  Age: 53 Year
  Sex: Female
  Weight: 74 kg

DRUGS (34)
  1. FASLODEX [Concomitant]
     Active Substance: FULVESTRANT
     Indication: BREAST CANCER
     Dosage: 500 MG
     Route: 065
     Dates: start: 20210608, end: 20210608
  2. MEGACE F [Concomitant]
     Indication: PROPHYLAXIS
     Dosage: 10 ML (SUSP)
     Route: 065
     Dates: start: 20210608, end: 20210621
  3. MEGACE F [Concomitant]
     Dosage: 5 ML
     Route: 065
     Dates: start: 20210622, end: 20210705
  4. MUCOSTEN [Concomitant]
     Dosage: 900
     Route: 065
     Dates: start: 20210709, end: 20210710
  5. DEPAKOTE [Concomitant]
     Active Substance: DIVALPROEX SODIUM
     Indication: NEUROPATHY PERIPHERAL
     Dosage: 250 MG
     Route: 065
     Dates: start: 20210409, end: 20210730
  6. HYDROCORTISONE. [Concomitant]
     Active Substance: HYDROCORTISONE
     Indication: HYPONATRAEMIA
     Dosage: 20 MG
     Route: 065
     Dates: start: 20210726, end: 20210727
  7. EPILENT [Concomitant]
     Indication: NEUROPATHY PERIPHERAL
     Dosage: 800 MG
     Route: 065
     Dates: start: 20210727, end: 20210729
  8. PHOSTEN [Concomitant]
     Indication: HYPOPHOSPHATAEMIA
     Dosage: 20 ML
     Route: 065
     Dates: start: 20210726, end: 20210729
  9. PLAKON [Concomitant]
     Indication: PROPHYLAXIS
     Dosage: 3 MG
     Route: 065
     Dates: start: 20210706, end: 20210716
  10. CORTISOLU [Concomitant]
     Active Substance: HYDROCORTISONE SODIUM SUCCINATE
     Indication: HYPONATRAEMIA
     Dosage: 150 MG
     Route: 065
     Dates: start: 20210727, end: 20210730
  11. KEROMIN [Concomitant]
     Indication: HEADACHE
     Dosage: 15 MG
     Route: 065
     Dates: start: 20210708, end: 20210719
  12. DEXAMETHASONE. [Concomitant]
     Active Substance: DEXAMETHASONE
     Indication: PROPHYLAXIS
     Dosage: 10 MG
     Route: 065
     Dates: start: 20210716, end: 20210727
  13. NORZYME [Concomitant]
     Indication: PROPHYLAXIS
     Dosage: 1 DF
     Route: 065
     Dates: start: 20210608, end: 20210608
  14. MUCOSTEN [Concomitant]
     Indication: PROPHYLAXIS
     Dosage: 300 MG
     Route: 065
     Dates: start: 20210707, end: 20210707
  15. VENTOLIN [Concomitant]
     Active Substance: ALBUTEROL SULFATE
     Indication: DYSPNOEA
     Dosage: 10 MG
     Route: 065
     Dates: start: 20210707, end: 20210730
  16. DUROGESIC [Concomitant]
     Active Substance: FENTANYL
     Indication: HEADACHE
     Dosage: 12 UG (D?TRANS PATCH 12MCG/H 5.25?)
     Route: 065
     Dates: start: 20210728, end: 20210730
  17. MANNITOL. [Concomitant]
     Active Substance: MANNITOL
     Indication: PROPHYLAXIS
     Dosage: 200 ML
     Route: 065
     Dates: start: 20210716, end: 20210729
  18. NORZYME [Concomitant]
     Dosage: 3 DF
     Route: 065
     Dates: start: 20210622, end: 20210705
  19. TARGIN [Concomitant]
     Active Substance: NALOXONE HYDROCHLORIDE\OXYCODONE HYDROCHLORIDE
     Indication: PROPHYLAXIS
     Dosage: 1 DF
     Route: 065
     Dates: start: 20210622, end: 20210622
  20. PETHIDINE [Concomitant]
     Active Substance: MEPERIDINE
     Indication: PROPHYLAXIS
     Dosage: 25 MG
     Route: 065
     Dates: start: 20210706, end: 20210729
  21. RIBOCICLIB. [Suspect]
     Active Substance: RIBOCICLIB
     Indication: BREAST CANCER METASTATIC
     Dosage: 600 MG
     Route: 048
     Dates: start: 20210608, end: 20210628
  22. XGEVA [Concomitant]
     Active Substance: DENOSUMAB
     Indication: METASTASES TO BONE
     Dosage: 120 MG
     Route: 065
     Dates: start: 20210622, end: 20210622
  23. TARGIN [Concomitant]
     Active Substance: NALOXONE HYDROCHLORIDE\OXYCODONE HYDROCHLORIDE
     Dosage: 2 DF
     Route: 065
     Dates: start: 20210715, end: 20210727
  24. TROPHERINE [Concomitant]
     Indication: PROPHYLAXIS
     Dosage: 1 EA
     Route: 065
     Dates: start: 20210715
  25. TARGIN [Concomitant]
     Active Substance: NALOXONE HYDROCHLORIDE\OXYCODONE HYDROCHLORIDE
     Indication: HEADACHE
     Dosage: 2 DF
     Route: 065
     Dates: start: 20210622, end: 20210705
  26. TAZOPERAN [Concomitant]
     Indication: PNEUMONIA
     Dosage: 18 G
     Route: 065
     Dates: start: 20210716, end: 20210730
  27. NACL [Concomitant]
     Active Substance: SODIUM CHLORIDE
     Indication: HYPONATRAEMIA
     Dosage: 20 ML
     Route: 065
     Dates: start: 20210715, end: 20210722
  28. ATROVENT UDV [Concomitant]
     Active Substance: IPRATROPIUM BROMIDE
     Indication: DYSPNOEA
     Dosage: 8 ML (SOLN) (STRENGTH: 500 MCG/2 ML)
     Route: 065
     Dates: start: 20210707, end: 20210730
  29. FENTORA [Concomitant]
     Active Substance: FENTANYL CITRATE
     Indication: HEADACHE
     Dosage: 100 UG
     Route: 065
     Dates: start: 20210720, end: 20210730
  30. NEURONTIN [Concomitant]
     Active Substance: GABAPENTIN
     Indication: NEUROPATHY PERIPHERAL
     Dosage: 1600 MG
     Route: 065
     Dates: start: 20210408, end: 20210730
  31. MUTEN [Concomitant]
     Indication: DYSPNOEA
     Dosage: 600
     Route: 065
     Dates: start: 20210707, end: 20210726
  32. MAGO [Concomitant]
     Indication: PROPHYLAXIS
     Dosage: 1500 MG
     Route: 065
     Dates: start: 20210622, end: 20210705
  33. MUCOSTEN [Concomitant]
     Dosage: 600 MG
     Route: 065
     Dates: start: 20210708, end: 20210708
  34. CALCIUM GLUCONATE. [Concomitant]
     Active Substance: CALCIUM GLUCONATE
     Indication: HYPOCALCAEMIA
     Dosage: 20 ML
     Route: 065
     Dates: start: 20210726, end: 20210729

REACTIONS (1)
  - Pancytopenia [Recovered/Resolved with Sequelae]

NARRATIVE: CASE EVENT DATE: 20210706
